FAERS Safety Report 7959728-9 (Version None)
Quarter: 2011Q4

REPORT INFORMATION
  Report Type: 
  Country: None (occurrence: None)
  Receive Date: 20111206
  Receipt Date: 20111128
  Transmission Date: 20120403
  Serious: Yes (Death)
  Sender: FDA-Public Use
  Company Number: US-GLAXOSMITHKLINE-A0955280A

PATIENT
  Age: 46 Year
  Sex: Female

DRUGS (5)
  1. TYKERB [Suspect]
     Indication: NEOPLASM MALIGNANT
     Dosage: 4TAB PER DAY
     Route: 048
     Dates: start: 20110314
  2. VALIUM [Concomitant]
  3. FENTANYL-100 [Concomitant]
  4. MORPHINE [Concomitant]
  5. ARIMIDEX [Concomitant]

REACTIONS (1)
  - BRAIN NEOPLASM MALIGNANT [None]
